FAERS Safety Report 25691350 (Version 1)
Quarter: 2025Q3

REPORT INFORMATION
  Report Type: Spontaneous
  Country: EU (occurrence: EU)
  Receive Date: 20250818
  Receipt Date: 20250818
  Transmission Date: 20251020
  Serious: Yes (Life-Threatening)
  Sender: MYLAN
  Company Number: None

PATIENT
  Age: 58 Year
  Sex: Male

DRUGS (12)
  1. LYRICA [Suspect]
     Active Substance: PREGABALIN
     Indication: Product used for unknown indication
  2. LYRICA [Suspect]
     Active Substance: PREGABALIN
     Route: 065
  3. LYRICA [Suspect]
     Active Substance: PREGABALIN
     Route: 065
  4. LYRICA [Suspect]
     Active Substance: PREGABALIN
  5. METHADONE HYDROCHLORIDE [Suspect]
     Active Substance: METHADONE HYDROCHLORIDE
     Indication: Product used for unknown indication
  6. METHADONE HYDROCHLORIDE [Suspect]
     Active Substance: METHADONE HYDROCHLORIDE
     Route: 065
  7. METHADONE HYDROCHLORIDE [Suspect]
     Active Substance: METHADONE HYDROCHLORIDE
     Route: 065
  8. METHADONE HYDROCHLORIDE [Suspect]
     Active Substance: METHADONE HYDROCHLORIDE
  9. OXAZEPAM [Suspect]
     Active Substance: OXAZEPAM
     Indication: Product used for unknown indication
  10. OXAZEPAM [Suspect]
     Active Substance: OXAZEPAM
     Route: 065
  11. OXAZEPAM [Suspect]
     Active Substance: OXAZEPAM
     Route: 065
  12. OXAZEPAM [Suspect]
     Active Substance: OXAZEPAM

REACTIONS (4)
  - Drug use disorder [Unknown]
  - Pneumonia aspiration [Unknown]
  - Acute respiratory failure [Unknown]
  - Somnolence [Recovered/Resolved]

NARRATIVE: CASE EVENT DATE: 20250314
